FAERS Safety Report 13824950 (Version 1)
Quarter: 2017Q3

REPORT INFORMATION
  Report Type: Spontaneous
  Country: GB (occurrence: GB)
  Receive Date: 20170802
  Receipt Date: 20170802
  Transmission Date: 20171127
  Serious: Yes (Other)
  Sender: FDA-Public Use
  Company Number: GB-PFIZER INC-2017329859

PATIENT
  Age: 67 Year
  Sex: Female

DRUGS (5)
  1. METHOTREXATE SODIUM. [Suspect]
     Active Substance: METHOTREXATE SODIUM
     Dosage: UNK
  2. SULFASALAZINE. [Suspect]
     Active Substance: SULFASALAZINE
     Dosage: UNK
  3. HUMIRA [Suspect]
     Active Substance: ADALIMUMAB
     Indication: OSTEOPOROSIS
     Dosage: UNK
  4. HUMIRA [Suspect]
     Active Substance: ADALIMUMAB
     Dosage: UNK
  5. HUMIRA [Suspect]
     Active Substance: ADALIMUMAB
     Indication: CROHN^S DISEASE
     Dosage: 40 MG/0.4 ML, UNK
     Route: 058
     Dates: start: 201608

REACTIONS (7)
  - Fall [Unknown]
  - Fracture [Unknown]
  - Immunodeficiency [Unknown]
  - Productive cough [Not Recovered/Not Resolved]
  - Off label use [Unknown]
  - Eye infection [Unknown]
  - Lower respiratory tract infection [Unknown]

NARRATIVE: CASE EVENT DATE: 201608
